FAERS Safety Report 6875778-8 (Version None)
Quarter: 2010Q3

REPORT INFORMATION
  Report Type: 
  Country: None (occurrence: None)
  Receive Date: 20100727
  Receipt Date: 20100714
  Transmission Date: 20110219
  Serious: Yes (Other)
  Sender: FDA-Public Use
  Company Number: DE-PFIZER INC-2010087741

PATIENT
  Age: 89 Year
  Sex: Female

DRUGS (1)
  1. CLINDAMYCIN HCL [Suspect]
     Indication: STASIS DERMATITIS
     Dosage: 300 MG, UNK
     Dates: start: 20100701, end: 20100701

REACTIONS (1)
  - TONGUE OEDEMA [None]
